FAERS Safety Report 16482716 (Version 1)
Quarter: 2019Q2

REPORT INFORMATION
  Report Type: Spontaneous
  Country: ES (occurrence: ES)
  Receive Date: 20190627
  Receipt Date: 20190627
  Transmission Date: 20190711
  Serious: Yes (Death, Hospitalization)
  Sender: FDA-Public Use
  Company Number: PHHY2019ES147601

PATIENT
  Age: 62 Year
  Sex: Female

DRUGS (6)
  1. TIMOGLOBULINA [Interacting]
     Active Substance: LAPINE T-LYMPHOCYTE IMMUNE GLOBULIN
     Indication: IMMUNOSUPPRESSION
     Dosage: 135 MG, QD
     Route: 042
     Dates: start: 20190221, end: 20190225
  2. CICLOFOSFAMIDA [Interacting]
     Active Substance: CYCLOPHOSPHAMIDE
     Indication: IMMUNOSUPPRESSION
     Dosage: 3.37 G, QD
     Route: 042
     Dates: start: 20190221, end: 20190224
  3. MYFORTIC [Suspect]
     Active Substance: MYCOPHENOLATE SODIUM
     Indication: SCLERODERMA
     Dosage: 360 MG, QD
     Route: 048
     Dates: start: 2016, end: 20190220
  4. FLUCONAZOL [Concomitant]
     Active Substance: FLUCONAZOLE
     Indication: ANTIFUNGAL TREATMENT
     Dosage: 200 MG, QD
     Route: 048
     Dates: start: 20190221, end: 20190227
  5. ACICLOVIR [Concomitant]
     Active Substance: ACYCLOVIR
     Indication: ANTIVIRAL PROPHYLAXIS
     Dosage: 800 MG, QD
     Route: 048
     Dates: start: 20190221, end: 20190227
  6. PENTAMIDIN ISETHIONATE NMD [Concomitant]
     Indication: PARASITIC INFECTION PROPHYLAXIS
     Dosage: 300 MG, QD
     Route: 055
     Dates: start: 20190221, end: 20190225

REACTIONS (1)
  - Respiratory failure [Fatal]

NARRATIVE: CASE EVENT DATE: 20190227
